FAERS Safety Report 5142673-4 (Version None)
Quarter: 2006Q4

REPORT INFORMATION
  Report Type: 
  Country: None (occurrence: None)
  Receive Date: 20061027
  Receipt Date: 20061013
  Transmission Date: 20070319
  Serious: Yes (Death, Hospitalization)
  Sender: FDA-Public Use
  Company Number: 228426

PATIENT
  Age: 68 Year
  Sex: Male
  Weight: 82 kg

DRUGS (10)
  1. AVASTIN [Suspect]
     Indication: COLORECTAL CANCER METASTATIC
     Dosage: 7.5 MG/KG, Q3W, INTRAVENOUS
     Route: 042
     Dates: start: 20060224, end: 20060717
  2. CAPECITABINE(CAPECITABINE) [Suspect]
     Indication: COLORECTAL CANCER METASTATIC
     Dosage: SEE IMAGE
     Route: 048
     Dates: start: 20060224
  3. OXALIPLATIN [Suspect]
     Indication: COLORECTAL CANCER METASTATIC
     Dosage: 104 MG/M2, INTRAVENOUS
     Route: 042
     Dates: start: 20060224
  4. ERBITUX [Suspect]
     Indication: COLORECTAL CANCER METASTATIC
     Dosage: 200 MG/M2, INTRAVENOUS
     Route: 042
     Dates: start: 20060224
  5. OXYCODONE HCL [Concomitant]
  6. TYLENOL (CAPLET) [Concomitant]
  7. MVI (MULTIVITAMINS NOS) [Concomitant]
  8. FENTANYL CITRATE [Concomitant]
  9. LOPRESSOR [Concomitant]
  10. HYDROCHLOROTHIAZIDE [Concomitant]

REACTIONS (8)
  - CARDIAC FAILURE CONGESTIVE [None]
  - DEHYDRATION [None]
  - DIARRHOEA [None]
  - DIZZINESS [None]
  - HAEMATOCRIT DECREASED [None]
  - HAEMOGLOBIN DECREASED [None]
  - PULMONARY EMBOLISM [None]
  - RECTAL HAEMORRHAGE [None]
